FAERS Safety Report 13452025 (Version 1)
Quarter: 2017Q2

REPORT INFORMATION
  Report Type: Spontaneous
  Country: US (occurrence: US)
  Receive Date: 20170418
  Receipt Date: 20170418
  Transmission Date: 20170830
  Serious: No
  Sender: FDA-Public Use
  Company Number: US-ZYDUS-010778

PATIENT
  Age: 73 Year
  Sex: Female

DRUGS (1)
  1. VALPROIC ACID. [Suspect]
     Active Substance: VALPROIC ACID
     Indication: HEADACHE
     Route: 048
     Dates: start: 20160406, end: 20160406

REACTIONS (4)
  - Sluggishness [Recovered/Resolved]
  - Weight increased [Recovered/Resolved]
  - Blood pressure increased [Recovered/Resolved]
  - Oedema [Recovered/Resolved]

NARRATIVE: CASE EVENT DATE: 20160406
